FAERS Safety Report 13284552 (Version 1)
Quarter: 2017Q1

REPORT INFORMATION
  Report Type: Report from Study
  Country: ZA (occurrence: ZA)
  Receive Date: 20170301
  Receipt Date: 20170301
  Transmission Date: 20170428
  Serious: Yes (Death, Hospitalization)
  Sender: FDA-Public Use
  Company Number: ZA-AMGEN-ZAFSL2017031235

PATIENT
  Age: 29 Year
  Sex: Female

DRUGS (1)
  1. ARANESP [Suspect]
     Active Substance: DARBEPOETIN ALFA
     Indication: CHRONIC KIDNEY DISEASE
     Dosage: 80 MUG, QWK
     Route: 058
     Dates: start: 201502, end: 201702

REACTIONS (3)
  - Death [Fatal]
  - Ill-defined disorder [Unknown]
  - Infection [Unknown]

NARRATIVE: CASE EVENT DATE: 201702
